FAERS Safety Report 8788629 (Version 3)
Quarter: 2012Q4

REPORT INFORMATION
  Report Type: 
  Country: US (occurrence: US)
  Receive Date: 20120916
  Receipt Date: 20121025
  Transmission Date: 20130627
  Serious: Yes (Other)
  Sender: FDA-Public Use
  Company Number: PHEH2012US015194

PATIENT
  Age: 50 Year
  Sex: Male
  Weight: 116.5 kg

DRUGS (3)
  1. GLEEVEC [Suspect]
     Indication: GASTRIC CANCER
     Dosage: 400 mg, QD
     Route: 048
     Dates: start: 20070309
  2. WELLBUTRIN XL [Concomitant]
     Indication: DEPRESSION
     Dosage: 300 mg, UNK
     Route: 048
     Dates: start: 200803
  3. CYMBALTA [Concomitant]
     Dosage: 20 mg, UNK
     Route: 048

REACTIONS (3)
  - Metastases to liver [Unknown]
  - Fatigue [Recovered/Resolved]
  - Hypertension [Recovering/Resolving]
